FAERS Safety Report 16087687 (Version 2)
Quarter: 2021Q4

REPORT INFORMATION
  Report Type: Spontaneous
  Country: ES (occurrence: ES)
  Receive Date: 20190319
  Receipt Date: 20211008
  Transmission Date: 20220303
  Serious: Yes (Hospitalization, Other)
  Sender: FDA-Public Use
  Company Number: ES-AEMPS-464017

PATIENT
  Age: 59 Year
  Sex: Male

DRUGS (4)
  1. LEVOFLOXACIN [Suspect]
     Active Substance: LEVOFLOXACIN
     Indication: Product used for unknown indication
     Dosage: UNK
     Route: 065
     Dates: start: 20190219, end: 20190226
  2. ISONIAZID\PYRIDOXINE [Suspect]
     Active Substance: ISONIAZID\PYRIDOXINE
     Indication: Pulmonary tuberculosis
     Dosage: 300MG + 50 MG CADA, ONCE A DAY (24H)
     Route: 048
     Dates: start: 20190219, end: 20190222
  3. ENOXAPARIN SODIUM [Suspect]
     Active Substance: ENOXAPARIN SODIUM
     Indication: Product used for unknown indication
     Dosage: 40 MILLIGRAM
     Route: 058
     Dates: start: 20190210, end: 20190222
  4. ETHAMBUTOL [Suspect]
     Active Substance: ETHAMBUTOL HYDROCHLORIDE
     Indication: Pulmonary tuberculosis
     Dosage: 800 MILLIGRAM
     Route: 048
     Dates: start: 20190219, end: 20190226

REACTIONS (4)
  - Thrombocytopenia [Unknown]
  - Melaena [Unknown]
  - Anaemia [Unknown]
  - Gingival bleeding [Unknown]

NARRATIVE: CASE EVENT DATE: 20190222
